FAERS Safety Report 10238594 (Version 2)
Quarter: 2014Q2

REPORT INFORMATION
  Report Type: Report from Study
  Country: US (occurrence: US)
  Receive Date: 20140616
  Receipt Date: 20140616
  Transmission Date: 20141212
  Serious: Yes (Hospitalization)
  Sender: FDA-Public Use
  Company Number: 2011SP003453

PATIENT
  Age: 57 Year
  Sex: Male
  Weight: 125 kg

DRUGS (29)
  1. ESLICARBAZEPINE ACETATE [Suspect]
     Indication: PARTIAL SEIZURES
     Route: 048
     Dates: start: 20111008, end: 20111009
  2. ESLICARBAZEPINE ACETATE [Suspect]
     Indication: PARTIAL SEIZURES
     Route: 048
     Dates: start: 20110917, end: 20111007
  3. ESLICARBAZEPINE ACETATE [Suspect]
     Indication: PARTIAL SEIZURES
     Route: 048
     Dates: start: 20110902, end: 20110916
  4. ZETIA [Concomitant]
     Indication: HYPERLIPIDAEMIA
     Route: 048
     Dates: start: 20091222
  5. VIAGRA [Concomitant]
     Indication: ERECTILE DYSFUNCTION
     Route: 048
     Dates: start: 20091130
  6. CIALIS [Concomitant]
     Indication: ERECTILE DYSFUNCTION
     Route: 048
     Dates: start: 20101014
  7. KEPPRA [Concomitant]
     Indication: EPILEPSY
     Route: 048
     Dates: start: 20111008
  8. KEPPRA [Concomitant]
     Indication: EPILEPSY
     Route: 048
     Dates: start: 20111007, end: 20111008
  9. KEPPRA [Concomitant]
     Indication: EPILEPSY
     Route: 048
     Dates: start: 20111006, end: 20111007
  10. KEPPRA [Concomitant]
     Indication: EPILEPSY
     Route: 048
     Dates: start: 20110902, end: 20111006
  11. DIOVAN [Concomitant]
     Indication: ESSENTIAL HYPERTENSION
     Route: 048
     Dates: start: 20110901
  12. DOXAZOSIN [Concomitant]
     Indication: PROSTATISM
     Route: 048
     Dates: start: 20110813
  13. BYSTOLIC [Concomitant]
     Indication: ESSENTIAL HYPERTENSION
     Route: 048
     Dates: start: 20110924
  14. LORAZEPAM [Concomitant]
     Indication: CONVULSION
     Route: 048
     Dates: start: 20111006, end: 20111007
  15. LORAZEPAM [Concomitant]
     Indication: AKATHISIA
     Route: 048
     Dates: start: 20111006, end: 20111007
  16. LORAZEPAM [Concomitant]
     Indication: CONVULSION
     Route: 042
     Dates: start: 20111005, end: 20111005
  17. LORAZEPAM [Concomitant]
     Indication: AKATHISIA
     Route: 042
     Dates: start: 20111005, end: 20111005
  18. LORAZEPAM [Concomitant]
     Indication: CONVULSION
     Route: 048
     Dates: start: 20110930, end: 20110930
  19. LORAZEPAM [Concomitant]
     Indication: AKATHISIA
     Route: 048
     Dates: start: 20110930, end: 20110930
  20. NEOMYCIN SULFATE W/POLYMYCIN B/HYDROCORTISO. [Concomitant]
     Indication: OTITIS EXTERNA
     Route: 061
     Dates: start: 20110924
  21. LISINOPRIL [Concomitant]
     Indication: ESSENTIAL HYPERTENSION
     Route: 048
     Dates: start: 20101012
  22. SIMVASTATIN [Concomitant]
     Indication: HYPERLIPIDAEMIA
     Route: 048
     Dates: start: 200604
  23. ASA [Concomitant]
     Indication: CARDIOVASCULAR EVENT PROPHYLAXIS
     Route: 048
     Dates: start: 20101203
  24. IBUPROFEN [Concomitant]
     Indication: ARTHRITIS
     Route: 048
     Dates: start: 1996
  25. MULTAQ [Concomitant]
     Indication: ATRIAL FIBRILLATION
     Route: 048
     Dates: start: 20110120
  26. SUCRALFATE [Concomitant]
     Indication: GASTROOESOPHAGEAL REFLUX DISEASE
     Dates: start: 20110208
  27. PANTOPRAZOLE [Concomitant]
     Indication: GASTROOESOPHAGEAL REFLUX DISEASE
     Route: 048
     Dates: start: 20100409
  28. PRISTIQ [Concomitant]
     Indication: DEPRESSION
     Route: 048
     Dates: start: 20111004
  29. PRISTIQ [Concomitant]
     Indication: DEPRESSION
     Route: 048
     Dates: start: 20101124, end: 20110925

REACTIONS (2)
  - Simple partial seizures [Recovered/Resolved]
  - Akathisia [Recovered/Resolved]
